FAERS Safety Report 5309952-9 (Version None)
Quarter: 2007Q2

REPORT INFORMATION
  Report Type: 
  Country: None (occurrence: None)
  Receive Date: 20070427
  Receipt Date: 20070420
  Transmission Date: 20071010
  Serious: Yes (Other)
  Sender: FDA-Public Use
  Company Number: 2007UW07976

PATIENT
  Sex: Female

DRUGS (16)
  1. ARIMIDEX [Suspect]
     Route: 048
     Dates: start: 20070402
  2. ADVAIR DISKUS 100/50 [Concomitant]
     Dosage: 250/25 MG 2 INH BID
  3. DITROPAN [Concomitant]
  4. LAXATIVES [Concomitant]
  5. ASPIRIN [Concomitant]
  6. CALCIUM CHLORIDE [Concomitant]
  7. CELEBREX [Concomitant]
  8. CELEXA [Concomitant]
  9. CODEINE SUL TAB [Concomitant]
  10. VITAMIN D [Concomitant]
  11. LASIX [Concomitant]
  12. PREVACID [Concomitant]
  13. POTASSIUM ACETATE [Concomitant]
  14. NITROGLYCERIN [Concomitant]
  15. COUMADIN [Concomitant]
     Dosage: AS PER INR
  16. COMBIVENT [Concomitant]
     Dosage: 2 INH QID

REACTIONS (1)
  - BLOOD TRIGLYCERIDES INCREASED [None]
